FAERS Safety Report 7098269-0 (Version None)
Quarter: 2010Q4

REPORT INFORMATION
  Report Type: 
  Country: None (occurrence: None)
  Receive Date: 20101112
  Receipt Date: 20101105
  Transmission Date: 20110411
  Serious: Yes (Hospitalization)
  Sender: FDA-Public Use
  Company Number: FR-SANOFI-AVENTIS-2010SA057131

PATIENT
  Age: 56 Year
  Sex: Female

DRUGS (17)
  1. RIFADIN [Suspect]
     Indication: STREPTOCOCCAL INFECTION
     Route: 041
     Dates: start: 20100715, end: 20100810
  2. BLINDED THERAPY [Suspect]
     Indication: PROPHYLAXIS
     Route: 048
     Dates: start: 20100129
  3. RIFAMPICIN [Suspect]
     Indication: STREPTOCOCCAL INFECTION
     Route: 048
     Dates: start: 20100810, end: 20100819
  4. GLUCOSE MONOHYDRATE AND ALUMINIUM MAGNESIUM SILICATE AND GLYCYRRHIZA G [Concomitant]
     Dates: start: 20100717
  5. HUMALOG [Concomitant]
     Route: 058
     Dates: start: 20100720, end: 20100826
  6. CORTANCYL [Concomitant]
     Indication: PROPHYLAXIS
     Route: 048
     Dates: start: 20081030, end: 20100903
  7. PRIMPERAN [Concomitant]
     Indication: NAUSEA
     Route: 048
     Dates: start: 20100818, end: 20100825
  8. TAREG [Concomitant]
     Dates: start: 20100814, end: 20100816
  9. TAVANIC [Concomitant]
     Indication: STREPTOCOCCAL INFECTION
     Route: 048
     Dates: start: 20100815
  10. ZANIDIP [Concomitant]
     Route: 048
     Dates: start: 20100816
  11. DAFALGAN [Concomitant]
     Indication: PAIN
     Route: 048
     Dates: start: 20100126
  12. ALPRAZOLAM [Concomitant]
     Indication: DEPRESSION
     Dates: start: 20100715
  13. ALPRAZOLAM [Concomitant]
     Dates: start: 20100715, end: 20100920
  14. CALCIPARINE [Concomitant]
     Indication: PROPHYLAXIS
     Route: 058
     Dates: start: 20100704, end: 20100826
  15. AMOXICILLIN [Concomitant]
     Indication: STREPTOCOCCAL INFECTION
     Route: 042
     Dates: start: 20100715, end: 20100818
  16. DALACIN [Concomitant]
     Indication: STREPTOCOCCAL INFECTION
     Route: 048
     Dates: start: 20100818
  17. KAYEXALATE [Concomitant]
     Route: 048
     Dates: start: 20100818

REACTIONS (1)
  - KIDNEY TRANSPLANT REJECTION [None]
